FAERS Safety Report 8901160 (Version 3)
Quarter: 2014Q1

REPORT INFORMATION
  Report Type: Spontaneous
  Country: US (occurrence: US)
  Receive Date: 20121108
  Receipt Date: 20140215
  Transmission Date: 20141002
  Serious: Yes (Other)
  Sender: FDA-Public Use
  Company Number: US-ASTRAZENECA-2012SE82473

PATIENT
  Age: 61 Year
  Sex: Female
  Weight: 62.6 kg

DRUGS (14)
  1. NEXIUM [Suspect]
     Indication: GASTROOESOPHAGEAL REFLUX DISEASE
     Route: 048
     Dates: start: 2001, end: 201311
  2. NEXIUM [Suspect]
     Indication: GASTROOESOPHAGEAL REFLUX DISEASE
     Route: 048
     Dates: start: 2001, end: 201311
  3. NEXIUM [Suspect]
     Indication: BARRETT^S OESOPHAGUS
     Route: 048
     Dates: start: 2001, end: 201311
  4. NEXIUM [Suspect]
     Indication: GASTROOESOPHAGEAL REFLUX DISEASE
     Route: 048
     Dates: start: 201312
  5. NEXIUM [Suspect]
     Indication: GASTROOESOPHAGEAL REFLUX DISEASE
     Route: 048
     Dates: start: 201312
  6. NEXIUM [Suspect]
     Indication: BARRETT^S OESOPHAGUS
     Route: 048
     Dates: start: 201312
  7. ZOLOFT [Concomitant]
     Indication: DEPRESSION
     Route: 048
     Dates: start: 198006
  8. ZOLOFT [Concomitant]
     Indication: DEPRESSION
     Route: 048
     Dates: start: 201306
  9. HYDROCODONE ACETAMINOPHEN [Concomitant]
     Indication: PAIN
     Dosage: 7.5-325 MG, EVERY 8 HOURS
     Route: 048
     Dates: start: 199006
  10. METOPROLOL TARTRATE [Concomitant]
     Indication: BLOOD PRESSURE ABNORMAL
     Route: 048
     Dates: start: 1990
  11. TRIMTERENE HCTZ [Concomitant]
     Indication: FLUID RETENTION
     Dosage: 37.5-25 MG, DAILY
     Route: 048
     Dates: start: 201306
  12. PRAVACHOL [Concomitant]
     Indication: BLOOD CHOLESTEROL INCREASED
     Route: 048
     Dates: start: 201309
  13. XANAX [Concomitant]
     Indication: ANXIETY
     Route: 048
     Dates: start: 1990
  14. XANAX [Concomitant]
     Indication: ANXIETY
     Route: 048
     Dates: start: 1990

REACTIONS (19)
  - Barrett^s oesophagus [Unknown]
  - Oesophageal disorder [Unknown]
  - Hypophagia [Unknown]
  - Weight decreased [Unknown]
  - Decreased appetite [Unknown]
  - Asthenia [Unknown]
  - Exposure to contaminated water [Unknown]
  - Blood cholesterol increased [Unknown]
  - Pain [Unknown]
  - Polyp [Unknown]
  - Cytology abnormal [Unknown]
  - Bladder pain [Unknown]
  - Diarrhoea [Unknown]
  - Abdominal discomfort [Unknown]
  - Malaise [Unknown]
  - Malaise [Unknown]
  - Abdominal pain [Unknown]
  - Drug dose omission [Unknown]
  - Intentional drug misuse [Unknown]
